FAERS Safety Report 7029937-4 (Version None)
Quarter: 2010Q3

REPORT INFORMATION
  Report Type: 
  Country: None (occurrence: None)
  Receive Date: 20100929
  Receipt Date: 20100318
  Transmission Date: 20110219
  Serious: Yes (Other)
  Sender: FDA-Public Use
  Company Number: 008977

PATIENT
  Age: 14 Year
  Sex: Male
  Weight: 97 kg

DRUGS (10)
  1. KEPPRA [Suspect]
     Indication: CONVULSION
     Dosage: DOSE INTRAVENOUS (NOT OTHERWISE SPECIFIED)
     Route: 042
     Dates: start: 20100125
  2. KEPPRA [Suspect]
     Indication: CONVULSION
     Dosage: (1 G BID ORAL)
     Route: 048
  3. METRONIDAZOLE [Concomitant]
  4. ASPIRIN [Concomitant]
  5. LOVENOX [Concomitant]
  6. ZANTAC /00550802/ [Concomitant]
  7. NYSTATIN [Concomitant]
  8. PREVACID [Concomitant]
  9. TRAZODONE [Concomitant]
  10. LISINOPRIL [Concomitant]

REACTIONS (1)
  - PANCREATITIS [None]
